FAERS Safety Report 4850590-X (Version None)
Quarter: 2005Q4

REPORT INFORMATION
  Report Type: 
  Country: None (occurrence: None)
  Receive Date: 20051212
  Receipt Date: 20051206
  Transmission Date: 20060501
  Serious: Yes (Hospitalization)
  Sender: FDA-Public Use
  Company Number: JP-BRACCO-BRO-009649

PATIENT
  Age: 50 Year
  Sex: Female
  Weight: 50 kg

DRUGS (2)
  1. IOPAMIRON [Suspect]
     Indication: MENINGIOMA
     Route: 013
  2. IOPAMIRON [Suspect]
     Indication: ANGIOGRAM CEREBRAL
     Route: 013

REACTIONS (1)
  - TUMOUR HAEMORRHAGE [None]
